FAERS Safety Report 6469567-6 (Version None)
Quarter: 2009Q4

REPORT INFORMATION
  Report Type: 
  Country: None (occurrence: None)
  Receive Date: 20091202
  Receipt Date: 20091202
  Transmission Date: 20100525
  Serious: Yes (Hospitalization)
  Sender: FDA-Public Use
  Company Number: None

PATIENT
  Sex: Male
  Weight: 89.4 kg

DRUGS (2)
  1. CISPLATIN 117 MG [Suspect]
     Dosage: 117 MG
  2. ALIMTA [Suspect]
     Dosage: 780 MG

REACTIONS (4)
  - CARDIAC ARREST [None]
  - EMBOLISM [None]
  - EXCORIATION [None]
  - PULMONARY EMBOLISM [None]
